FAERS Safety Report 7679048-X (Version None)
Quarter: 2011Q3

REPORT INFORMATION
  Report Type: 
  Country: None (occurrence: None)
  Receive Date: 20110812
  Receipt Date: 20110801
  Transmission Date: 20111222
  Serious: Yes (Hospitalization)
  Sender: FDA-Public Use
  Company Number: US-AMGEN-USASP2011012628

PATIENT
  Age: 36 Day
  Sex: Male
  Weight: 4.3 kg

DRUGS (1)
  1. ENBREL [Suspect]
     Dosage: UNK

REACTIONS (5)
  - EAR INFECTION [None]
  - JAUNDICE NEONATAL [None]
  - HAEMORRHAGIC STROKE [None]
  - MENINGITIS ENTEROVIRAL [None]
  - URINARY TRACT INFECTION BACTERIAL [None]
